FAERS Safety Report 24224223 (Version 1)
Quarter: 2024Q3

REPORT INFORMATION
  Report Type: Spontaneous
  Country: ES (occurrence: ES)
  Receive Date: 20240819
  Receipt Date: 20240819
  Transmission Date: 20241017
  Serious: Yes (Life-Threatening, Hospitalization)
  Sender: TEVA
  Company Number: None

PATIENT
  Age: 46 Year
  Sex: Male
  Weight: 83.9 kg

DRUGS (1)
  1. IBUPROFEN [Suspect]
     Active Substance: IBUPROFEN
     Indication: Self-medication
     Dosage: IBUPROFENO (1769A)
     Route: 048
     Dates: start: 20240606, end: 20240614

REACTIONS (3)
  - Anaemia [Recovering/Resolving]
  - Gastritis erosive [Recovered/Resolved]
  - Gastric ulcer haemorrhage [Recovered/Resolved]

NARRATIVE: CASE EVENT DATE: 20240614
